FAERS Safety Report 19159722 (Version 1)
Quarter: 2021Q2

REPORT INFORMATION
  Report Type: Spontaneous
  Country: SE (occurrence: SE)
  Receive Date: 20210420
  Receipt Date: 20210420
  Transmission Date: 20210717
  Serious: Yes (Other)
  Sender: FDA-Public Use
  Company Number: SE-TEVA-2021-SE-1902815

PATIENT
  Age: 26 Year
  Sex: Female

DRUGS (6)
  1. SAROTEN 25 MG FILMDRAGERAD TABLETT [Concomitant]
     Dates: start: 20191009
  2. ZOMIG 2,5 MG FILMDRAGERAD TABLETT [Concomitant]
     Dosage: VB
     Dates: start: 20190219
  3. METOPROLOL. [Suspect]
     Active Substance: METOPROLOL
     Indication: MIGRAINE PROPHYLAXIS
     Dosage: 50 MG 1+1
     Route: 048
     Dates: start: 202009, end: 202101
  4. OMECAT 20 MG ENTEROKAPSEL, HARD [Concomitant]
     Dosage: ENTEROCAPSULE, HARD
     Dates: start: 20200127
  5. NAPROXEN. [Concomitant]
     Active Substance: NAPROXEN
     Dosage: 500 MG VB
     Dates: start: 20200127
  6. EXLUTENA 0,5 MG TABLETT [Concomitant]
     Dates: start: 20191107

REACTIONS (1)
  - Intermenstrual bleeding [Recovered/Resolved]

NARRATIVE: CASE EVENT DATE: 202009
